FAERS Safety Report 10204900 (Version 1)
Quarter: 2014Q2

REPORT INFORMATION
  Report Type: Spontaneous
  Country: ZA (occurrence: None)
  Receive Date: 20140527
  Receipt Date: 20140527
  Transmission Date: 20141212
  Serious: Yes (Disabling)
  Sender: FDA-Public Use
  Company Number: None

PATIENT
  Age: 26 Year
  Sex: Female
  Weight: 91 kg

DRUGS (1)
  1. VICTOZA 3ML NOVO NOR DISK [Suspect]
     Dosage: 1,2, ONCE DAILY, INJECTED

REACTIONS (5)
  - Vomiting [None]
  - Hepatomegaly [None]
  - Weight increased [None]
  - General physical health deterioration [None]
  - Irritable bowel syndrome [None]
